FAERS Safety Report 23262396 (Version 2)
Quarter: 2023Q4

REPORT INFORMATION
  Report Type: Spontaneous
  Country: US (occurrence: None)
  Receive Date: 20231205
  Receipt Date: 20231207
  Transmission Date: 20240110
  Serious: Yes (Other)
  Sender: FDA-Public Use
  Company Number: US-ROCHE-3466450

PATIENT
  Sex: Male
  Weight: 88.53 kg

DRUGS (14)
  1. OCREVUS [Suspect]
     Active Substance: OCRELIZUMAB
     Indication: Relapsing-remitting multiple sclerosis
     Dosage: MOST RECENT DOSE WAS ON 29/JUN/2023
     Route: 042
     Dates: start: 201904
  2. VITAMIN B COMPLEX [Concomitant]
     Active Substance: CYANOCOBALAMIN\DEXPANTHENOL\NIACINAMIDE\PYRIDOXINE HYDROCHLORIDE\RIBOFLAVIN 5^-PHOSPHATE SODIUM\THIA
  3. QUETIAPINE [Concomitant]
     Active Substance: QUETIAPINE
  4. ONDANSETRON HYDROCHLORIDE [Concomitant]
     Active Substance: ONDANSETRON HYDROCHLORIDE
  5. MOMETASONE [Concomitant]
     Active Substance: MOMETASONE
  6. AZELASTINE [Concomitant]
     Active Substance: AZELASTINE\AZELASTINE HYDROCHLORIDE
  7. ATORVASTATIN [Concomitant]
     Active Substance: ATORVASTATIN
  8. NALOXONE [Concomitant]
     Active Substance: NALOXONE
  9. COLACE [Concomitant]
     Active Substance: DOCUSATE SODIUM
  10. LEVOTHYROXINE [Concomitant]
     Active Substance: LEVOTHYROXINE
  11. PERCOCET [Concomitant]
     Active Substance: ACETAMINOPHEN\OXYCODONE HYDROCHLORIDE
  12. LOSARTAN [Concomitant]
     Active Substance: LOSARTAN
  13. BACLOFEN [Concomitant]
     Active Substance: BACLOFEN
  14. PROVIGIL [Concomitant]
     Active Substance: MODAFINIL

REACTIONS (11)
  - Thyroid cancer [Unknown]
  - Multiple sclerosis [Unknown]
  - Nephrolithiasis [Unknown]
  - Dizziness [Unknown]
  - Neuralgia [Unknown]
  - Constipation [Unknown]
  - Hypertension [Unknown]
  - Peripheral swelling [Unknown]
  - Arthralgia [Unknown]
  - Pain [Unknown]
  - Tinnitus [Unknown]

NARRATIVE: CASE EVENT DATE: 20230901
